FAERS Safety Report 10283844 (Version 2)
Quarter: 2014Q4

REPORT INFORMATION
  Report Type: Report from Study
  Country: JP (occurrence: None)
  Receive Date: 20140703
  Receipt Date: 20141027
  Transmission Date: 20150528
  Serious: Yes (Death, Other)
  Sender: FDA-Public Use
  Company Number: 2014MPI00774

PATIENT
  Age: 79 Year
  Sex: Male
  Weight: 57 kg

DRUGS (15)
  1. ADCETRIS [Suspect]
     Active Substance: BRENTUXIMAB VEDOTIN
     Indication: ANAPLASTIC LARGE-CELL LYMPHOMA
     Route: 041
     Dates: start: 20140508, end: 20140508
  2. BISOPROLOL (BISOPROLOL FUMARATE, HYDROCHLOROTHIAZIDE) [Concomitant]
  3. BUFFERIN (ACETYLSALICYLCI ACID, ALUMINIUM GLYCINATE, MAGNESIUM CARBONATE) [Concomitant]
  4. NOVOLIN N (INSULIN HUMAN INJECTION, ISOPHANE) [Concomitant]
  5. URIEF (SILODOSIN) [Concomitant]
  6. BUFFERIN A (ACETYLSALICYLIC ACID, HYDROTALCITE) [Concomitant]
  7. CALONAL (PARACETAMOL) [Concomitant]
  8. ZOLPIDEM TARTRATE (ZOLPIDEM TARTRATE) [Concomitant]
     Active Substance: ZOLPIDEM TARTRATE
  9. EQUA (VILDAGLIPTIN) [Concomitant]
     Active Substance: VILDAGLIPTIN
  10. SENNOSIDE A+B [Concomitant]
     Active Substance: SENNOSIDES A AND B
  11. CORTRIL (HYDROCORTISONE) [Concomitant]
  12. MYCOSYST (FLUCONAZOLE) [Concomitant]
  13. LANSOPRAZOLE. [Concomitant]
     Active Substance: LANSOPRAZOLE
  14. DECADRON (DEXAMETHADSONE ACETATE) [Concomitant]
  15. ATORVASTATIN (ATORVASTATIN) [Concomitant]
     Active Substance: ATORVASTATIN

REACTIONS (12)
  - Interstitial lung disease [None]
  - Neutropenia [None]
  - Klebsiella test positive [None]
  - Respiratory failure [None]
  - Hypoaesthesia [None]
  - Neisseria test positive [None]
  - Peripheral sensory neuropathy [None]
  - Streptococcus test positive [None]
  - Candida test positive [None]
  - Constipation [None]
  - Malaise [None]
  - Diarrhoea [None]

NARRATIVE: CASE EVENT DATE: 20140509
